FAERS Safety Report 10698706 (Version 2)
Quarter: 2015Q1

REPORT INFORMATION
  Report Type: Spontaneous
  Country: US (occurrence: US)
  Receive Date: 20150108
  Receipt Date: 20150109
  Transmission Date: 20150721
  Serious: Yes (Death, Other)
  Sender: FDA-Public Use
  Company Number: US-BAYER-2014-191469

PATIENT
  Age: 24 Year
  Sex: Male

DRUGS (6)
  1. ETHANOL [Suspect]
     Active Substance: ALCOHOL
  2. DIPHENHYDRAMINE HYDROCHLORIDE. [Suspect]
     Active Substance: DIPHENHYDRAMINE HYDROCHLORIDE
  3. VENLAFAXINE [Suspect]
     Active Substance: VENLAFAXINE HYDROCHLORIDE
     Indication: DEPRESSION
     Dosage: 75 MG, UNK
  4. MIRTAZAPINE. [Suspect]
     Active Substance: MIRTAZAPINE
     Indication: DEPRESSION
     Dosage: 15 MG, UNK
  5. MITRAGYNINE [Suspect]
     Active Substance: MITRAGYNINE
  6. OMEPRAZOLE. [Concomitant]
     Active Substance: OMEPRAZOLE
     Dosage: 20 MG, UNK

REACTIONS (7)
  - Toxicity to various agents [Fatal]
  - Pulmonary congestion [None]
  - Vomiting [None]
  - Pulmonary oedema [None]
  - Feeling cold [Fatal]
  - Urinary retention [None]
  - Unresponsive to stimuli [Fatal]
